FAERS Safety Report 4307696-3 (Version None)
Quarter: 2004Q1

REPORT INFORMATION
  Report Type: 
  Country: None (occurrence: None)
  Receive Date: 20040226
  Receipt Date: 20040213
  Transmission Date: 20041129
  Serious: Yes (Other)
  Sender: FDA-Public Use
  Company Number: 2004020003

PATIENT
  Age: 66 Year
  Sex: Male

DRUGS (4)
  1. DORAL [Suspect]
     Indication: INSOMNIA
     Dosage: 15 MG QD, PO
     Route: 048
     Dates: start: 20031025, end: 20031110
  2. BETHANECOL (BETHANECOL CHLORIDE) [Concomitant]
  3. TIAPRIDE HYDROCHLORIDE (TIAPRIDE HYDROCHLORIDE) [Concomitant]
  4. ETHYL LEFLAZEPATE (ETHYL LOFLAZEPATE) [Concomitant]

REACTIONS (4)
  - DEPRESSED LEVEL OF CONSCIOUSNESS [None]
  - GRIP STRENGTH DECREASED [None]
  - PNEUMONIA ASPIRATION [None]
  - PYREXIA [None]
